FAERS Safety Report 19350257 (Version 1)
Quarter: 2021Q2

REPORT INFORMATION
  Report Type: Spontaneous
  Country: US (occurrence: US)
  Receive Date: 20210531
  Receipt Date: 20210531
  Transmission Date: 20210717
  Serious: No
  Sender: FDA-Public Use
  Company Number: US-ESPERIONTHERAPEUTICS-2021USA00525

PATIENT
  Age: 62 Year
  Sex: Male
  Weight: 83.4 kg

DRUGS (13)
  1. NEXLIZET [Suspect]
     Active Substance: BEMPEDOIC ACID\EZETIMIBE
     Indication: BLOOD CHOLESTEROL INCREASED
     Dosage: 180 MILLIGRAM, QD
     Route: 048
     Dates: start: 20201003
  2. ASPIRIN [ACETYLSALICYLIC ACID] [Concomitant]
     Active Substance: ASPIRIN
     Indication: CORONARY ARTERY DISEASE
     Dosage: 81 MILLIGRAM, QD
     Route: 048
     Dates: start: 2014
  3. HYDROCODONE/ACETAMINOPHEN [Concomitant]
     Active Substance: ACETAMINOPHEN\HYDROCODONE
     Dosage: 1 TABLET, PRN
     Route: 048
     Dates: start: 20200908, end: 20200918
  4. JANUMET XR [Concomitant]
     Active Substance: METFORMIN HYDROCHLORIDE\SITAGLIPTIN PHOSPHATE
     Indication: TYPE 1 DIABETES MELLITUS
     Dosage: 100 MILLIGRAM, QD
     Route: 048
     Dates: start: 201804
  5. BEMPEDOIC ACID VERSUS PLACEBO [Suspect]
     Active Substance: BEMPEDOIC ACID
     Indication: HYPERLIPIDAEMIA
     Dosage: 180 MILLIGRAM, QD
     Route: 048
     Dates: start: 20181218, end: 20201207
  6. TRIMETHOPRIM SULFAMETHOXAZOLE [Concomitant]
     Active Substance: SULFAMETHOXAZOLE\TRIMETHOPRIM
     Dosage: 800/160 MILLIGRAM, QD
     Route: 048
     Dates: start: 20200613, end: 20201001
  7. PRAVASTATIN. [Concomitant]
     Active Substance: PRAVASTATIN
     Dosage: 40 MILLIGRAM, QD
     Route: 048
     Dates: start: 20190521, end: 20201002
  8. FISH OIL [Concomitant]
     Active Substance: FISH OIL
     Dosage: 1 TABLET, QD
     Route: 048
     Dates: start: 2000
  9. FLUCONAZOLE. [Concomitant]
     Active Substance: FLUCONAZOLE
     Dosage: 200 MILLIGRAM, QW
     Route: 048
     Dates: start: 20190509, end: 20201001
  10. FLUCONAZOLE. [Concomitant]
     Active Substance: FLUCONAZOLE
     Dosage: 200 MILLIGRAM, QD
     Route: 048
     Dates: start: 20201002, end: 20201208
  11. NAPROXEN. [Concomitant]
     Active Substance: NAPROXEN
     Dosage: 220 MILLIGRAM, PRN
     Route: 048
     Dates: start: 20190531
  12. EZETIMIBE. [Concomitant]
     Active Substance: EZETIMIBE
     Indication: BLOOD CHOLESTEROL INCREASED
     Dosage: 10 MILLIGRAM, QD
     Route: 048
     Dates: start: 20190521, end: 20201002
  13. LOSARTAN. [Concomitant]
     Active Substance: LOSARTAN
     Indication: HYPERTENSION
     Dosage: 100 MILLIGRAM, QD
     Route: 048
     Dates: start: 20190521

REACTIONS (1)
  - Product administration error [Recovered/Resolved]

NARRATIVE: CASE EVENT DATE: 20201003
